FAERS Safety Report 9794611 (Version 3)
Quarter: 2014Q1

REPORT INFORMATION
  Report Type: Report from Study
  Country: US (occurrence: US)
  Receive Date: 20140102
  Receipt Date: 20140219
  Transmission Date: 20141002
  Serious: Yes (Hospitalization)
  Sender: FDA-Public Use
  Company Number: US-GLAXOSMITHKLINE-A1054943A

PATIENT
  Age: 38 Year
  Sex: Female
  Weight: 76.5 kg

DRUGS (2)
  1. TRAMETINIB [Suspect]
     Indication: NEOPLASM
     Dosage: 2MG PER DAY
     Route: 048
     Dates: start: 20131119, end: 20131222
  2. GSK2141795 [Suspect]
     Indication: NEOPLASM
     Dosage: 225MG PER DAY
     Route: 048
     Dates: start: 20131119

REACTIONS (1)
  - Pancreatitis acute [Recovered/Resolved]
